FAERS Safety Report 9217437 (Version 1)
Quarter: 2013Q2

REPORT INFORMATION
  Report Type: Report from Study
  Country: NL (occurrence: NL)
  Receive Date: 20130408
  Receipt Date: 20130408
  Transmission Date: 20140414
  Serious: Yes (Hospitalization)
  Sender: FDA-Public Use
  Company Number: NL-ASTRAZENECA-2013SE21910

PATIENT
  Age: 114 Day
  Sex: Female
  Weight: 4.3 kg

DRUGS (2)
  1. SYNAGIS [Suspect]
     Indication: PREMATURE BABY
     Route: 030
     Dates: start: 20130227
  2. SYNAGIS [Suspect]
     Indication: PREMATURE BABY
     Route: 030
     Dates: start: 20130327

REACTIONS (3)
  - Nasal congestion [Recovered/Resolved]
  - Respiratory tract infection [Recovered/Resolved]
  - Respiratory syncytial virus infection [Unknown]
